FAERS Safety Report 19898501 (Version 2)
Quarter: 2022Q1

REPORT INFORMATION
  Report Type: Spontaneous
  Country: CA (occurrence: CA)
  Receive Date: 20210930
  Receipt Date: 20220203
  Transmission Date: 20220423
  Serious: Yes (Death, Other)
  Sender: FDA-Public Use
  Company Number: CA-AUROBINDO-AUR-APL-2021-040390

PATIENT

DRUGS (8)
  1. METRONIDAZOLE [Suspect]
     Active Substance: METRONIDAZOLE
     Indication: Neoplasm
     Dosage: 250 MILLIGRAM/SQ. METER, ONCE A DAY
     Route: 054
  2. METRONIDAZOLE [Suspect]
     Active Substance: METRONIDAZOLE
     Dosage: 750 MILLIGRAM/SQ. METER, ONCE A DAY
     Route: 048
  3. CYCLOSPORINE [Suspect]
     Active Substance: CYCLOSPORINE
     Indication: Neoplasm
     Dosage: 150 MILLIGRAM/SQ. METER, TWO TIMES A DAY
     Route: 048
  4. DIPYRIDAMOLE [Suspect]
     Active Substance: DIPYRIDAMOLE
     Indication: Neoplasm
     Dosage: 100 MILLIGRAM/SQ. METER, FOUR TIMES/DAY
     Route: 048
  5. ETOPOSIDE [Suspect]
     Active Substance: ETOPOSIDE
     Indication: Neoplasm
     Dosage: 60 MILLIGRAM/SQ. METER, ONCE A DAY
  6. ETOPOSIDE [Suspect]
     Active Substance: ETOPOSIDE
     Dosage: 75 MILLIGRAM/SQ. METER, ONCE A DAY
     Route: 042
  7. KETOCONAZOLE [Suspect]
     Active Substance: KETOCONAZOLE
     Indication: Neoplasm
     Dosage: 350 MILLIGRAM/SQ. METER, ONCE A DAY
     Route: 048
  8. TAMOXIFEN CITRATE [Suspect]
     Active Substance: TAMOXIFEN CITRATE
     Indication: Neoplasm
     Dosage: 100 MILLIGRAM/SQ. METER, ONCE A DAY
     Route: 048

REACTIONS (1)
  - Neutropenic sepsis [Fatal]
